FAERS Safety Report 7328790-9 (Version None)
Quarter: 2011Q1

REPORT INFORMATION
  Report Type: 
  Country: None (occurrence: None)
  Receive Date: 20110303
  Receipt Date: 20110223
  Transmission Date: 20110831
  Serious: Yes (Other)
  Sender: FDA-Public Use
  Company Number: US-ALLERGAN-1102760US

PATIENT
  Age: 44 Year
  Sex: Male

DRUGS (1)
  1. BOTOXA? [Suspect]
     Indication: SKIN WRINKLING
     Dosage: UNK

REACTIONS (1)
  - SINUS DISORDER [None]
